FAERS Safety Report 6626997-7 (Version None)
Quarter: 2010Q1

REPORT INFORMATION
  Report Type: 
  Country: None (occurrence: None)
  Receive Date: 20100311
  Receipt Date: 20091119
  Transmission Date: 20100710
  Serious: No
  Sender: FDA-Public Use
  Company Number: US-KINGPHARMUSA00001-K200901460

PATIENT
  Age: 47 Year
  Sex: Male
  Weight: 79.365 kg

DRUGS (6)
  1. EMBEDA [Suspect]
     Indication: INTERVERTEBRAL DISC PROTRUSION
     Dosage: 60 MG Q 12 H
     Route: 065
     Dates: start: 20090101, end: 20090101
  2. EMBEDA [Suspect]
     Indication: NECK PAIN
  3. EMBEDA [Suspect]
     Indication: ROTATOR CUFF SYNDROME
  4. EMBEDA [Suspect]
     Indication: BURSITIS
  5. EMBEDA [Suspect]
     Indication: PAIN IN EXTREMITY
  6. DILAUDID [Concomitant]
     Dosage: 4 MG, BID

REACTIONS (1)
  - RASH [None]
